FAERS Safety Report 4640765-7 (Version None)
Quarter: 2005Q2

REPORT INFORMATION
  Report Type: 
  Country: None (occurrence: None)
  Receive Date: 20050324
  Receipt Date: 20050105
  Transmission Date: 20051028
  Serious: No
  Sender: FDA-Public Use
  Company Number: 211499

PATIENT
  Age: 63 Year
  Sex: Male
  Weight: 86.6 kg

DRUGS (2)
  1. AVASTIN [Suspect]
     Indication: METASTATIC RENAL CELL CARCINOMA
     Dosage: SEE IMAGE
     Route: 042
     Dates: start: 20040805
  2. LISINOPRIL [Concomitant]

REACTIONS (1)
  - HYPERTENSION [None]
